FAERS Safety Report 10220674 (Version 1)
Quarter: 2014Q2

REPORT INFORMATION
  Report Type: Spontaneous
  Country: US (occurrence: None)
  Receive Date: 20140605
  Receipt Date: 20140605
  Transmission Date: 20141212
  Serious: No
  Sender: FDA-Public Use
  Company Number: None

PATIENT
  Age: 54 Year
  Sex: Female
  Weight: 58.97 kg

DRUGS (1)
  1. NITROFUR [Suspect]
     Indication: URINARY TRACT INFECTION
     Dosage: 1 CAPSULE TWICE DAILY TAKEN BY MOUTH
     Route: 048
     Dates: start: 20140601, end: 20140602

REACTIONS (6)
  - Headache [None]
  - Hypoaesthesia [None]
  - Dizziness [None]
  - Insomnia [None]
  - Sensory disturbance [None]
  - Blood pressure decreased [None]
